FAERS Safety Report 7121073-1 (Version None)
Quarter: 2010Q4

REPORT INFORMATION
  Report Type: 
  Country: None (occurrence: None)
  Receive Date: 20101124
  Receipt Date: 20101116
  Transmission Date: 20110411
  Serious: Yes (Hospitalization)
  Sender: FDA-Public Use
  Company Number: JP-BRISTOL-MYERS SQUIBB COMPANY-15273287

PATIENT
  Age: 52 Year
  Sex: Female
  Weight: 45 kg

DRUGS (8)
  1. ABILIFY [Suspect]
     Indication: SCHIZOPHRENIA
     Dosage: TAB,12MG,3YS,23NV07-8MAY08:168D,18MGQPM.9MY-17JUL08:24MG,70D.18JUL08-5A909:30MG,384D,6AG09-OG:24MG
     Route: 048
     Dates: start: 20071123
  2. AMOBAN [Suspect]
     Indication: INSOMNIA
     Dosage: TABS.AT BED TIME
     Route: 048
     Dates: start: 20071123
  3. EVAMYL [Suspect]
     Indication: INSOMNIA
     Dosage: TAB.AT BED TIME
     Route: 048
     Dates: start: 20071123
  4. LORAZEPAM [Suspect]
     Indication: IRRITABILITY
     Dosage: TABS
     Route: 048
     Dates: start: 20071123
  5. LORAZEPAM [Suspect]
     Indication: ANXIETY
     Dosage: TABS
     Route: 048
     Dates: start: 20071123
  6. GLYCYRRHIZA [Concomitant]
     Dosage: EXTRACT,RHEUM PALMATUM.TABLET
     Dates: start: 20071123
  7. MAGMITT [Concomitant]
     Dosage: TABLET
     Dates: start: 20080509
  8. MUCOSTA [Concomitant]
     Dosage: TABLET
     Dates: start: 20100525

REACTIONS (5)
  - BLOOD PRESSURE INCREASED [None]
  - DIZZINESS [None]
  - GAZE PALSY [None]
  - HEADACHE [None]
  - HYDRONEPHROSIS [None]
